FAERS Safety Report 4635378-7 (Version None)
Quarter: 2005Q2

REPORT INFORMATION
  Report Type: 
  Country: None (occurrence: None)
  Receive Date: 20050411
  Receipt Date: 20050328
  Transmission Date: 20051028
  Serious: Yes (Life-Threatening, Hospitalization)
  Sender: FDA-Public Use
  Company Number: US014983

PATIENT
  Age: 6 Year
  Sex: Male
  Weight: 19.0511 kg

DRUGS (4)
  1. MODAFINIL [Suspect]
     Indication: NARCOLEPSY
     Dosage: 100 MG QD ORAL
     Route: 048
     Dates: start: 20050311, end: 20050317
  2. MODAFINIL [Suspect]
     Indication: NARCOLEPSY
     Dosage: 400 MG QD ORAL
     Route: 048
     Dates: start: 20050318, end: 20050326
  3. ALLEGRA [Concomitant]
  4. FLONASE [Concomitant]

REACTIONS (12)
  - AMMONIA INCREASED [None]
  - BLOOD PHOSPHORUS DECREASED [None]
  - CONDITION AGGRAVATED [None]
  - CONVULSION [None]
  - DELIRIUM [None]
  - HALLUCINATION [None]
  - METABOLIC DISORDER [None]
  - NAUSEA [None]
  - PHARYNGITIS [None]
  - PYREXIA [None]
  - SOMNOLENCE [None]
  - VOMITING [None]
